FAERS Safety Report 8764144 (Version 2)
Quarter: 2012Q4

REPORT INFORMATION
  Report Type: 
  Country: US (occurrence: US)
  Receive Date: 20120831
  Receipt Date: 20120831
  Transmission Date: 20130627
  Serious: Yes (Other)
  Sender: FDA-Public Use
  Company Number: US-JNJFOC-20110805445

PATIENT
  Sex: Female
  Weight: 62.14 kg

DRUGS (4)
  1. LEVAQUIN [Suspect]
     Indication: BACTERIAL INFECTION
     Route: 048
  2. AVELOX [Suspect]
     Indication: BRONCHITIS
     Route: 048
  3. MEDROL [Suspect]
     Indication: BRONCHITIS
     Route: 048
  4. PREDNISONE [Suspect]
     Indication: BRONCHITIS
     Route: 048

REACTIONS (4)
  - Rotator cuff syndrome [Unknown]
  - Muscle rupture [Recovering/Resolving]
  - Tendon rupture [Recovering/Resolving]
  - Rotator cuff syndrome [Unknown]
